FAERS Safety Report 18065917 (Version 1)
Quarter: 2020Q3

REPORT INFORMATION
  Report Type: Spontaneous
  Country: JP (occurrence: JP)
  Receive Date: 20200724
  Receipt Date: 20200724
  Transmission Date: 20201103
  Serious: Yes (Hospitalization, Other)
  Sender: FDA-Public Use
  Company Number: JP-LUPIN PHARMACEUTICALS INC.-2020-03513

PATIENT
  Age: 80 Year
  Sex: Male

DRUGS (4)
  1. FLUCONAZOLE. [Suspect]
     Active Substance: FLUCONAZOLE
     Indication: PNEUMONIA CRYPTOCOCCAL
     Dosage: 400 MILLIGRAM, QD
     Route: 065
  2. FLUCONAZOLE. [Suspect]
     Active Substance: FLUCONAZOLE
     Indication: LYMPHADENOPATHY MEDIASTINAL
  3. VORICONAZOLE. [Suspect]
     Active Substance: VORICONAZOLE
     Indication: PNEUMONIA CRYPTOCOCCAL
     Dosage: 700 MILLIGRAM, QD
     Route: 042
  4. VORICONAZOLE. [Suspect]
     Active Substance: VORICONAZOLE
     Indication: LYMPHADENOPATHY MEDIASTINAL
     Dosage: 460 MILLIGRAM, QD
     Route: 042

REACTIONS (3)
  - Drug resistance [Unknown]
  - Condition aggravated [Recovered/Resolved]
  - Lung infiltration [Recovered/Resolved]
